FAERS Safety Report 4490225-1 (Version None)
Quarter: 2004Q4

REPORT INFORMATION
  Report Type: 
  Country: None (occurrence: None)
  Receive Date: 20041027
  Receipt Date: 20041012
  Transmission Date: 20050328
  Serious: Yes (Death)
  Sender: FDA-Public Use
  Company Number: 2004-00619

PATIENT
  Age: 66 Year
  Sex: Female
  Weight: 60 kg

DRUGS (1)
  1. VELCADE [Suspect]
     Indication: MULTIPLE MYELOMA
     Dosage: 1.66 MG, INTRAVENOUS
     Route: 042
     Dates: start: 20040601, end: 20040722

REACTIONS (6)
  - ARRHYTHMIA [None]
  - BLOOD IMMUNOGLOBULIN G DECREASED [None]
  - HAEMOGLOBIN DECREASED [None]
  - PLATELET COUNT DECREASED [None]
  - SUDDEN CARDIAC DEATH [None]
  - WHITE BLOOD CELL COUNT DECREASED [None]
